FAERS Safety Report 4608888-6 (Version None)
Quarter: 2005Q1

REPORT INFORMATION
  Report Type: 
  Country: None (occurrence: None)
  Receive Date: 20050315
  Receipt Date: 20050210
  Transmission Date: 20050727
  Serious: Yes (Other)
  Sender: FDA-Public Use
  Company Number: PHEH2005US01952

PATIENT
  Age: 56 Year
  Sex: Male

DRUGS (4)
  1. GLEEVEC [Suspect]
     Indication: CHRONIC MYELOID LEUKAEMIA
     Dosage: 600 MG, QD
     Route: 048
     Dates: start: 20020301
  2. GLEEVEC [Suspect]
     Dosage: 300 MG, QD
     Route: 048
     Dates: start: 20050201
  3. POTASSIUM CHLORIDE [Concomitant]
  4. ANTIBIOTICS [Concomitant]

REACTIONS (21)
  - ABDOMINAL PAIN UPPER [None]
  - BACTERIAL FOOD POISONING [None]
  - BLOOD PRESSURE INCREASED [None]
  - BURNING SENSATION [None]
  - CHEST PAIN [None]
  - ERYTHEMA [None]
  - FLUID RETENTION [None]
  - FOOD POISONING [None]
  - HEADACHE [None]
  - INFECTION [None]
  - LEUKOPENIA [None]
  - PAIN [None]
  - PAIN IN EXTREMITY [None]
  - PARAESTHESIA [None]
  - PRURITUS GENERALISED [None]
  - RASH [None]
  - SKIN INFLAMMATION [None]
  - THROAT TIGHTNESS [None]
  - WEIGHT INCREASED [None]
  - WOUND COMPLICATION [None]
  - WOUND HAEMORRHAGE [None]
